FAERS Safety Report 23066516 (Version 1)
Quarter: 2023Q4

REPORT INFORMATION
  Report Type: Spontaneous
  Country: IN (occurrence: IN)
  Receive Date: 20231015
  Receipt Date: 20231015
  Transmission Date: 20240109
  Serious: Yes (Other)
  Sender: FDA-Public Use
  Company Number: IN-ABBVIE-5447001

PATIENT
  Sex: Male

DRUGS (2)
  1. OZURDEX [Suspect]
     Active Substance: DEXAMETHASONE
     Indication: Diabetic retinal oedema
     Dosage: TIME INTERVAL: AS NECESSARY
     Route: 031
  2. OZURDEX [Suspect]
     Active Substance: DEXAMETHASONE
     Dosage: TIME INTERVAL: AS NECESSARY
     Route: 031

REACTIONS (2)
  - Device breakage [Unknown]
  - Ocular hyperaemia [Recovered/Resolved]
